FAERS Safety Report 4467048-2 (Version None)
Quarter: 2004Q4

REPORT INFORMATION
  Report Type: 
  Country: None (occurrence: None)
  Receive Date: 20041004
  Receipt Date: 20040920
  Transmission Date: 20050328
  Serious: Yes (Other)
  Sender: FDA-Public Use
  Company Number: 2004068259

PATIENT
  Age: 83 Year
  Sex: Female
  Weight: 45.3597 kg

DRUGS (3)
  1. UNISOM [Suspect]
     Indication: INSOMNIA
     Dosage: 1 PILL QHS, ORAL
     Route: 048
     Dates: end: 20040918
  2. ATORVASTATIN (ATORVASTATIN) [Concomitant]
  3. ANTIEMETICS AND ANTINAUSEANTS (ANTIEMETICS AND ANTINAUSEANTS) [Concomitant]

REACTIONS (1)
  - DRUG DEPENDENCE [None]
